FAERS Safety Report 5858605-7 (Version None)
Quarter: 2008Q3

REPORT INFORMATION
  Report Type: 
  Country: None (occurrence: None)
  Receive Date: 20080826
  Receipt Date: 20080813
  Transmission Date: 20090109
  Serious: Yes (Other)
  Sender: FDA-Public Use
  Company Number: GB-ELI_LILLY_AND_COMPANY-GB200806001655

PATIENT
  Sex: Female
  Weight: 66.4 kg

DRUGS (3)
  1. YENTREVE [Suspect]
     Indication: STRESS URINARY INCONTINENCE
     Dosage: 40 MG, 2/D
     Route: 048
     Dates: start: 20080407, end: 20080101
  2. YENTREVE [Suspect]
     Dosage: 20 MG, 2/D
     Route: 048
     Dates: start: 20080515, end: 20080526
  3. BISOPROLOL FUMARATE [Concomitant]
     Indication: PALPITATIONS
     Dosage: 5 MG, DAILY (1/D)
     Route: 048
     Dates: start: 19920101

REACTIONS (15)
  - ABDOMINAL PAIN LOWER [None]
  - BODY TEMPERATURE INCREASED [None]
  - DISORIENTATION [None]
  - DISTURBANCE IN ATTENTION [None]
  - DRY MOUTH [None]
  - DYSGEUSIA [None]
  - FATIGUE [None]
  - FEELING ABNORMAL [None]
  - HEADACHE [None]
  - HEPATITIS [None]
  - MALAISE [None]
  - NAUSEA [None]
  - POOR QUALITY SLEEP [None]
  - VISION BLURRED [None]
  - VOMITING [None]
